FAERS Safety Report 20691909 (Version 1)
Quarter: 2022Q2

REPORT INFORMATION
  Report Type: Report from Study
  Country: US (occurrence: US)
  Receive Date: 20220408
  Receipt Date: 20220408
  Transmission Date: 20220721
  Serious: Yes (Other)
  Sender: FDA-Public Use
  Company Number: US-GILEAD-2022-0576735

PATIENT
  Age: 34 Year
  Sex: Male

DRUGS (2)
  1. COBICISTAT\ELVITEGRAVIR\EMTRICITABINE\TENOFOVIR [Suspect]
     Active Substance: COBICISTAT\ELVITEGRAVIR\EMTRICITABINE\TENOFOVIR
     Indication: HIV infection
     Dosage: 1 DOSAGE FORM
     Route: 048
     Dates: start: 201901
  2. COVID-19 VACCINE [Concomitant]
     Dosage: 3 DOSES

REACTIONS (4)
  - Central nervous system inflammation [Unknown]
  - Gastrointestinal inflammation [Unknown]
  - Lymphadenitis [Unknown]
  - COVID-19 [Unknown]
